FAERS Safety Report 16861266 (Version 1)
Quarter: 2019Q3

REPORT INFORMATION
  Report Type: Spontaneous
  Country: CA (occurrence: CA)
  Receive Date: 20190927
  Receipt Date: 20190927
  Transmission Date: 20191005
  Serious: Yes (Hospitalization)
  Sender: FDA-Public Use
  Company Number: CA-TEVA-2019-CA-1114451

PATIENT
  Age: 79 Year
  Sex: Female
  Weight: 72 kg

DRUGS (12)
  1. ATENOLOL TABLETS, BP [Concomitant]
     Active Substance: ATENOLOL
  2. ACETAMINOPHEN. [Concomitant]
     Active Substance: ACETAMINOPHEN
  3. ALENDRONATE [Suspect]
     Active Substance: ALENDRONATE SODIUM
     Indication: OSTEOPOROSIS
     Route: 048
  4. LEVOTHYROXINE. [Concomitant]
     Active Substance: LEVOTHYROXINE
  5. ASA [Concomitant]
     Active Substance: ASPIRIN
  6. RISEDRONATE(MANUFACTURER UNKNOWN) [Concomitant]
     Active Substance: RISEDRONATE SODIUM
  7. ASCORBIC ACID (VITAMIN C) [Concomitant]
     Active Substance: ASCORBIC ACID
  8. VITAMIN D [Concomitant]
     Active Substance: VITAMIN D NOS
  9. FUROSEMIDE. [Concomitant]
     Active Substance: FUROSEMIDE
  10. MAGNESIUM OXIDE. [Concomitant]
     Active Substance: MAGNESIUM OXIDE
  11. SALBUTAMOL HFA [Concomitant]
     Active Substance: ALBUTEROL
  12. TEMAZEPAM. [Concomitant]
     Active Substance: TEMAZEPAM

REACTIONS (2)
  - Intramedullary rod insertion [Recovering/Resolving]
  - Femur fracture [Recovering/Resolving]
